FAERS Safety Report 12240718 (Version 1)
Quarter: 2016Q2

REPORT INFORMATION
  Report Type: Spontaneous
  Country: US (occurrence: US)
  Receive Date: 20160406
  Receipt Date: 20160406
  Transmission Date: 20160815
  Serious: Yes (Other)
  Sender: FDA-Public Use
  Company Number: US-BEH-2016060625

PATIENT
  Sex: Female
  Weight: 49 kg

DRUGS (17)
  1. HIZENTRA [Suspect]
     Active Substance: HUMAN IMMUNOGLOBULIN G
     Indication: PRODUCT USED FOR UNKNOWN INDICATION
     Route: 058
  2. VITAMIN D [Concomitant]
     Active Substance: CHOLECALCIFEROL
  3. CALCIUM [Concomitant]
     Active Substance: CALCIUM
  4. DIPHENHYDRAMINE. [Concomitant]
     Active Substance: DIPHENHYDRAMINE
  5. CALCIUM [Concomitant]
     Active Substance: CALCIUM
  6. LIDOCAINE/PRILOCAINE [Concomitant]
  7. EPIPEN [Concomitant]
     Active Substance: EPINEPHRINE
  8. TURMERIC [Concomitant]
     Active Substance: TURMERIC
  9. BIOTIN [Concomitant]
     Active Substance: BIOTIN
  10. FOLIC ACID. [Concomitant]
     Active Substance: FOLIC ACID
  11. REFRESH TEARS [Concomitant]
     Active Substance: CARBOXYMETHYLCELLULOSE SODIUM
  12. ROGAINE 2% SOLUTION [Concomitant]
  13. TOVIAZ [Concomitant]
     Active Substance: FESOTERODINE FUMARATE
  14. METHOTREXATE [Concomitant]
     Active Substance: METHOTREXATE
  15. ACETAMINOPHEN. [Concomitant]
     Active Substance: ACETAMINOPHEN
  16. CELEBREX [Concomitant]
     Active Substance: CELECOXIB
  17. FINASTERIDE. [Concomitant]
     Active Substance: FINASTERIDE

REACTIONS (2)
  - Escherichia test positive [Unknown]
  - Bacterial infection [Unknown]
